FAERS Safety Report 6278605-5 (Version None)
Quarter: 2009Q3

REPORT INFORMATION
  Report Type: 
  Country: None (occurrence: None)
  Receive Date: 20090722
  Receipt Date: 20090219
  Transmission Date: 20100115
  Serious: No
  Sender: FDA-Public Use
  Company Number: US-BAUSCH-2009BL000707

PATIENT
  Age: 68 Year
  Sex: Male
  Weight: 108 kg

DRUGS (3)
  1. OPCON-A [Suspect]
     Indication: EYE PRURITUS
     Route: 047
     Dates: start: 20090217, end: 20090218
  2. PRINIVIL [Concomitant]
     Indication: HYPERTENSION
     Route: 048
  3. ZOCOR [Concomitant]
     Indication: BLOOD CHOLESTEROL INCREASED
     Route: 048

REACTIONS (2)
  - BLOOD PRESSURE INCREASED [None]
  - VISION BLURRED [None]
